FAERS Safety Report 18374561 (Version 1)
Quarter: 2020Q4

REPORT INFORMATION
  Report Type: Spontaneous
  Country: US (occurrence: US)
  Receive Date: 20201012
  Receipt Date: 20201012
  Transmission Date: 20210114
  Serious: Yes (Death)
  Sender: FDA-Public Use
  Company Number: US-FRESENIUS KABI-FK202010575

PATIENT
  Age: 41 Year
  Sex: Female

DRUGS (15)
  1. HEPARIN (MANUFACTURER UNKNOWN) [Suspect]
     Active Substance: HEPARIN SODIUM
     Indication: ANTICOAGULANT THERAPY
     Dosage: UNKNOWN
     Route: 065
  2. HEPARIN (MANUFACTURER UNKNOWN) [Suspect]
     Active Substance: HEPARIN SODIUM
     Dosage: TARGET GOAL ACTIVATED PARTIAL THROMBOPLASTIN TIME (APTT) (50 TO 65 SECONDS)
     Route: 042
  3. ACETAZOLAMIDE. [Concomitant]
     Active Substance: ACETAZOLAMIDE
     Indication: REDUCTION OF INCREASED INTRACRANIAL PRESSURE
     Dosage: UNKNOWN
     Route: 065
  4. ALTEPLASE. [Suspect]
     Active Substance: ALTEPLASE
     Indication: ANTICOAGULANT THERAPY
     Route: 050
  5. ACETAZOLAMIDE. [Concomitant]
     Active Substance: ACETAZOLAMIDE
     Indication: BRAIN OEDEMA
  6. DROSPIRENONE [Concomitant]
     Active Substance: DROSPIRENONE
     Indication: PRODUCT USED FOR UNKNOWN INDICATION
     Dosage: UNKNOWN
     Route: 065
  7. SODIUM CHLORIDE. [Concomitant]
     Active Substance: SODIUM CHLORIDE
     Dosage: UNKNOWN
     Route: 050
  8. SODIUM CHLORIDE. [Concomitant]
     Active Substance: SODIUM CHLORIDE
     Indication: ANTICOAGULANT THERAPY
     Dosage: ALTEPLASE 10 MG IN 510 ML OF NORMAL SALINE
     Route: 050
  9. HEPARIN (MANUFACTURER UNKNOWN) [Suspect]
     Active Substance: HEPARIN SODIUM
     Dosage: STANDARD TARGET GOAL APTT (50 TO 80 S)
     Route: 042
  10. SODIUM CHLORIDE. [Concomitant]
     Active Substance: SODIUM CHLORIDE
     Indication: REDUCTION OF INCREASED INTRACRANIAL PRESSURE
     Dosage: UNKNOWN
     Route: 065
  11. SODIUM CHLORIDE. [Concomitant]
     Active Substance: SODIUM CHLORIDE
     Indication: REDUCTION OF INCREASED INTRACRANIAL PRESSURE
     Dosage: UNKNOWN
     Route: 065
  12. ETHINYLESTRADIOL [Concomitant]
     Active Substance: ETHINYL ESTRADIOL
     Indication: PRODUCT USED FOR UNKNOWN INDICATION
     Dosage: UNKNOWN
     Route: 065
  13. MANNITOL. [Concomitant]
     Active Substance: MANNITOL
     Indication: REDUCTION OF INCREASED INTRACRANIAL PRESSURE
     Dosage: UNKNOWN
     Route: 065
  14. ALTEPLASE. [Suspect]
     Active Substance: ALTEPLASE
     Route: 050
  15. SODIUM CHLORIDE. [Concomitant]
     Active Substance: SODIUM CHLORIDE
     Dosage: UNKNOWN
     Route: 065

REACTIONS (3)
  - Haemorrhage [Fatal]
  - Condition aggravated [Fatal]
  - Cerebral venous sinus thrombosis [Fatal]
